FAERS Safety Report 6106155-5 (Version None)
Quarter: 2009Q1

REPORT INFORMATION
  Report Type: 
  Country: None (occurrence: None)
  Receive Date: 20090306
  Receipt Date: 20090304
  Transmission Date: 20090719
  Serious: Yes (Death)
  Sender: FDA-Public Use
  Company Number: PHBS2009GB01002

PATIENT

DRUGS (1)
  1. CLOZAPINE [Suspect]

REACTIONS (1)
  - GASTROINTESTINAL HAEMORRHAGE [None]
